FAERS Safety Report 24180821 (Version 1)
Quarter: 2024Q3

REPORT INFORMATION
  Report Type: Spontaneous
  Country: CN (occurrence: CN)
  Receive Date: 20240806
  Receipt Date: 20240806
  Transmission Date: 20241016
  Serious: Yes (Other)
  Sender: PURDUE
  Company Number: CN-NAPPMUNDI-GBR-2024-0118610

PATIENT
  Age: 60 Year
  Sex: Male
  Weight: 45 kg

DRUGS (1)
  1. OXYCODONE HYDROCHLORIDE [Suspect]
     Active Substance: OXYCODONE HYDROCHLORIDE
     Indication: Symptomatic treatment
     Dosage: 1 TABLET, BID
     Route: 048
     Dates: start: 20240516, end: 20240519

REACTIONS (4)
  - Somnolence [Recovering/Resolving]
  - Altered state of consciousness [Recovered/Resolved]
  - Dyspnoea [Recovering/Resolving]
  - Miosis [Recovered/Resolved]

NARRATIVE: CASE EVENT DATE: 20240519
